FAERS Safety Report 9668010 (Version 1)
Quarter: 2013Q4

REPORT INFORMATION
  Report Type: Report from Study
  Country: TH (occurrence: TH)
  Receive Date: 20131104
  Receipt Date: 20131104
  Transmission Date: 20140711
  Serious: Yes (Hospitalization)
  Sender: FDA-Public Use
  Company Number: TH-GLAXOSMITHKLINE-B0938450A

PATIENT
  Age: 79 Year
  Sex: 0
  Weight: 69 kg

DRUGS (11)
  1. VENTOLIN [Suspect]
     Indication: RESPIRATORY DISORDER
     Route: 055
     Dates: start: 20130330
  2. ADVAIR [Suspect]
     Indication: RESPIRATORY DISORDER
     Route: 055
     Dates: start: 20130330
  3. STUDY MEDICATION [Suspect]
     Indication: CHRONIC OBSTRUCTIVE PULMONARY DISEASE
     Route: 048
     Dates: start: 20130330
  4. LORAZEPAM [Concomitant]
     Indication: INSOMNIA
     Dosage: .5MG PER DAY
     Route: 048
     Dates: start: 20130326
  5. TIOTROPIUM [Concomitant]
     Indication: RESPIRATORY DISORDER
     Dates: start: 20110908
  6. SIMVASTATIN [Concomitant]
     Indication: DYSLIPIDAEMIA
     Dosage: 20MG PER DAY
     Route: 048
     Dates: start: 20080220
  7. LOSARTAN [Concomitant]
     Indication: HYPERTENSION
     Dosage: 100MG PER DAY
     Route: 048
     Dates: start: 20130115
  8. SINEMET [Concomitant]
     Indication: PARKINSON^S DISEASE
     Route: 048
     Dates: start: 20060306
  9. EXELON [Concomitant]
     Indication: DEMENTIA
     Dosage: 3MG PER DAY
     Route: 048
     Dates: start: 20060306
  10. NOOTROPIL [Concomitant]
     Indication: ILL-DEFINED DISORDER
     Dosage: 600MG TWICE PER DAY
     Route: 048
     Dates: start: 20120327
  11. HYDROCHLOROTHIAZIDE [Concomitant]
     Indication: DIURETIC THERAPY
     Dosage: 50MG PER DAY
     Route: 048
     Dates: start: 20130501, end: 20130508

REACTIONS (3)
  - Hyponatraemia [Recovered/Resolved with Sequelae]
  - Hypokalaemia [Recovered/Resolved with Sequelae]
  - Hypovolaemic shock [Recovered/Resolved]
